FAERS Safety Report 23715364 (Version 2)
Quarter: 2024Q2

REPORT INFORMATION
  Report Type: Report from Study
  Country: NL (occurrence: NL)
  Receive Date: 20240407
  Receipt Date: 20240610
  Transmission Date: 20240716
  Serious: Yes (Other)
  Sender: FDA-Public Use
  Company Number: NL-002147023-NVSC2024NL072648

PATIENT
  Age: 68 Year
  Sex: Male

DRUGS (3)
  1. OCTREOTIDE ACETATE [Suspect]
     Active Substance: OCTREOTIDE ACETATE
     Indication: Pancreatic neuroendocrine tumour
     Dosage: 1 DOSAGE FORM, Q4W
     Route: 030
  2. OCTREOTIDE ACETATE [Suspect]
     Active Substance: OCTREOTIDE ACETATE
  3. OCTREOTIDE ACETATE [Suspect]
     Active Substance: OCTREOTIDE ACETATE

REACTIONS (3)
  - Thrombosis [Unknown]
  - Hepatobiliary disease [Unknown]
  - Cholelithiasis [Unknown]

NARRATIVE: CASE EVENT DATE: 20240325
